FAERS Safety Report 5484585-2 (Version None)
Quarter: 2007Q4

REPORT INFORMATION
  Report Type: 
  Country: None (occurrence: None)
  Receive Date: 20071012
  Receipt Date: 20071003
  Transmission Date: 20080405
  Serious: Yes (Other)
  Sender: FDA-Public Use
  Company Number: CA-PFIZER INC-2007083457

PATIENT
  Age: 16 Year
  Sex: Female

DRUGS (3)
  1. NEURONTIN [Suspect]
     Indication: ABDOMINAL PAIN
     Route: 048
     Dates: start: 20070401, end: 20070501
  2. PREVACID [Concomitant]
  3. ORAL CONTRACEPTIVE NOS [Concomitant]

REACTIONS (2)
  - BLADDER DILATATION [None]
  - URINARY RETENTION [None]
